FAERS Safety Report 12283327 (Version 1)
Quarter: 2016Q2

REPORT INFORMATION
  Report Type: Spontaneous
  Country: DE (occurrence: DE)
  Receive Date: 20160419
  Receipt Date: 20160419
  Transmission Date: 20160815
  Serious: Yes (Congenital Anomaly)
  Sender: FDA-Public Use
  Company Number: DE-TEVA-653315GER

PATIENT

DRUGS (13)
  1. HYDROXYCHLOROQUINE [Concomitant]
     Active Substance: HYDROXYCHLOROQUINE
     Route: 064
  2. PREDNISOLONE. [Concomitant]
     Active Substance: PREDNISOLONE
     Route: 064
  3. SIMVASTATIN. [Concomitant]
     Active Substance: SIMVASTATIN
     Route: 064
  4. SALBUTAMOL [Concomitant]
     Active Substance: ALBUTEROL
     Route: 064
  5. RAMIPRIL. [Suspect]
     Active Substance: RAMIPRIL
     Route: 064
  6. EZETIMIBE. [Concomitant]
     Active Substance: EZETIMIBE
     Route: 064
  7. RIVAROXABAN [Concomitant]
     Active Substance: RIVAROXABAN
     Route: 064
  8. PANTOPRAZOLE [Concomitant]
     Active Substance: PANTOPRAZOLE SODIUM
     Route: 064
  9. ALISKIREN [Concomitant]
     Active Substance: ALISKIREN
     Route: 064
  10. TORASEMIDE [Concomitant]
     Active Substance: TORSEMIDE
     Route: 064
  11. ASPIRIN. [Concomitant]
     Active Substance: ASPIRIN
     Route: 064
  12. TACROLIMUS. [Concomitant]
     Active Substance: TACROLIMUS
     Route: 064
  13. DIPYRONE [Concomitant]
     Active Substance: DIPYRONE
     Route: 064

REACTIONS (2)
  - Congenital cardiovascular anomaly [Unknown]
  - Foetal exposure during pregnancy [Unknown]
